FAERS Safety Report 21667613 (Version 6)
Quarter: 2023Q2

REPORT INFORMATION
  Report Type: Spontaneous
  Country: US (occurrence: US)
  Receive Date: 20221201
  Receipt Date: 20230607
  Transmission Date: 20230721
  Serious: No
  Sender: FDA-Public Use
  Company Number: US-PFIZER INC-202201343391

PATIENT
  Age: 80 Year
  Sex: Female
  Weight: 61.23 kg

DRUGS (9)
  1. INLYTA [Suspect]
     Active Substance: AXITINIB
     Indication: Renal cell carcinoma
     Dosage: 3 MG, 2X/DAY ((3) 1MG TABLET 3AM, (3) 1MG TABLET 3PM)
     Dates: start: 20221104
  2. INLYTA [Suspect]
     Active Substance: AXITINIB
     Dosage: 3 MG, 2X/DAY (3MG IN MORNING AND 3MG 12 HOURS LATER)
     Dates: start: 202210
  3. INLYTA [Suspect]
     Active Substance: AXITINIB
     Dosage: 5 MG, 2X/DAY
  4. INLYTA [Suspect]
     Active Substance: AXITINIB
     Dosage: 1 MG
  5. PEMBROLIZUMAB [Suspect]
     Active Substance: PEMBROLIZUMAB
     Indication: Renal cell carcinoma
     Dosage: 125 MG, EVERY 3 WEEKS (125 MG IN SODIUM CHLORIDE 0.9% 50 ML)
     Dates: start: 20221101
  6. FOSAMAX [Concomitant]
     Active Substance: ALENDRONATE SODIUM
     Dosage: 70 MG
     Dates: start: 2017
  7. AMLODIPINE [Concomitant]
     Active Substance: AMLODIPINE BESYLATE
     Dosage: 5 MG
     Dates: start: 2017
  8. LIPITOR [Concomitant]
     Active Substance: ATORVASTATIN CALCIUM
     Dosage: 20 MG
     Dates: start: 2017
  9. CELEXA [Concomitant]
     Active Substance: CITALOPRAM HYDROBROMIDE
     Dosage: 20 MG
     Dates: start: 2017

REACTIONS (7)
  - Musculoskeletal stiffness [Recovered/Resolved]
  - Mobility decreased [Recovered/Resolved]
  - Joint stiffness [Recovered/Resolved]
  - Off label use [Unknown]
  - Diarrhoea [Unknown]
  - Dyslexia [Unknown]
  - Localised infection [Unknown]

NARRATIVE: CASE EVENT DATE: 20221001
